FAERS Safety Report 7683804-1 (Version None)
Quarter: 2011Q3

REPORT INFORMATION
  Report Type: 
  Country: None (occurrence: None)
  Receive Date: 20110815
  Receipt Date: 20110804
  Transmission Date: 20111222
  Serious: Yes (Hospitalization)
  Sender: FDA-Public Use
  Company Number: CA-JNJFOC-20110804069

PATIENT
  Sex: Female
  Weight: 47 kg

DRUGS (1)
  1. REMICADE [Suspect]
     Indication: CROHN'S DISEASE
     Dosage: THIS WAS THE PATIEN'T FIRST AND ONLY DOSE OF INFLIXIMAB TO DATE
     Route: 042
     Dates: start: 20110721

REACTIONS (1)
  - LISTERIOSIS [None]
